FAERS Safety Report 7996855-4 (Version None)
Quarter: 2011Q4

REPORT INFORMATION
  Report Type: 
  Country: None (occurrence: None)
  Receive Date: 20111221
  Receipt Date: 20111209
  Transmission Date: 20120403
  Serious: Yes (Hospitalization, Other)
  Sender: FDA-Public Use
  Company Number: US-BAYER-2011-036661

PATIENT
  Age: 21 Year
  Sex: Female
  Weight: 76.19 kg

DRUGS (2)
  1. CLONAZEPAM [Concomitant]
     Indication: TOURETTE'S DISORDER
     Dosage: 0.5 MG, BID
     Dates: start: 20070429, end: 20070519
  2. YAZ [Suspect]
     Indication: MOOD SWINGS
     Dosage: UNK
     Route: 048
     Dates: start: 20070501, end: 20070519

REACTIONS (7)
  - OEDEMA PERIPHERAL [None]
  - THROMBOSIS [None]
  - PAIN IN EXTREMITY [None]
  - PULMONARY EMBOLISM [None]
  - DEEP VEIN THROMBOSIS [None]
  - DYSPNOEA [None]
  - CHEST PAIN [None]
